FAERS Safety Report 11680123 (Version 1)
Quarter: 2015Q4

REPORT INFORMATION
  Report Type: Spontaneous
  Country: IT (occurrence: IT)
  Receive Date: 20151029
  Receipt Date: 20151029
  Transmission Date: 20160304
  Serious: Yes (Death, Other)
  Sender: FDA-Public Use
  Company Number: PHHY2015IT136599

PATIENT
  Age: 76 Year
  Sex: Female

DRUGS (1)
  1. CEFTRIAXONE. [Suspect]
     Active Substance: CEFTRIAXONE
     Indication: BRONCHITIS
     Dosage: 1 DF, ONCE/SINGLE
     Route: 065
     Dates: start: 20151005, end: 20151005

REACTIONS (5)
  - Coma [Fatal]
  - Anaphylactic shock [Fatal]
  - Circulatory collapse [Fatal]
  - Cardio-respiratory arrest [Fatal]
  - Drug dispensing error [Unknown]

NARRATIVE: CASE EVENT DATE: 20151005
